FAERS Safety Report 6134834-2 (Version None)
Quarter: 2009Q1

REPORT INFORMATION
  Report Type: 
  Country: None (occurrence: None)
  Receive Date: 20090327
  Receipt Date: 20090324
  Transmission Date: 20090719
  Serious: Yes (Hospitalization)
  Sender: FDA-Public Use
  Company Number: BR-NOVOPROD-282913

PATIENT
  Age: 7 Year
  Sex: Female
  Weight: 28 kg

DRUGS (6)
  1. LEVEMIR [Suspect]
     Indication: TYPE 1 DIABETES MELLITUS
     Dates: start: 20050101
  2. LEVEMIR [Suspect]
     Dosage: 55U MORNING + 25U NIGHT
  3. NOVORAPID PENFILL [Suspect]
     Indication: TYPE 1 DIABETES MELLITUS
     Dates: start: 20050101
  4. PREDNISOLONE (3MG) [Concomitant]
     Dosage: 13 ML, QD
     Route: 048
     Dates: start: 20090101
  5. ESPIRONOLACTONA [Concomitant]
     Dosage: UNK, UNK
     Dates: start: 20090101
  6. RANITIDINE HCL [Concomitant]
     Indication: PROPHYLAXIS
     Dosage: 2 ML, QD
     Route: 048
     Dates: start: 20090101

REACTIONS (2)
  - DRUG INEFFECTIVE [None]
  - IDIOPATHIC THROMBOCYTOPENIC PURPURA [None]
